FAERS Safety Report 5005841-8 (Version None)
Quarter: 2006Q1

REPORT INFORMATION
  Report Type: 
  Country: None (occurrence: None)
  Receive Date: 20060327
  Receipt Date: 20060208
  Transmission Date: 20060701
  Serious: Yes (Other)
  Sender: FDA-Public Use
  Company Number: PHEH2006US01911

PATIENT
  Age: 16 Year
  Sex: Male
  Weight: 59.4 kg

DRUGS (1)
  1. FOCALIN XR [Suspect]
     Indication: ATTENTION DEFICIT/HYPERACTIVITY DISORDER
     Dosage: 20 MG, QD IN A.M., ORAL
     Route: 048
     Dates: start: 20060128, end: 20060129

REACTIONS (2)
  - BLOOD GLUCOSE INCREASED [None]
  - CONVULSION [None]
